FAERS Safety Report 7283270 (Version 5)
Quarter: 2015Q1

REPORT INFORMATION
  Report Type: Report from Study
  Country: US (occurrence: US)
  Receive Date: 20100218
  Receipt Date: 20150319
  Transmission Date: 20150721
  Serious: Yes (Hospitalization, Other)
  Sender: FDA-Public Use
  Company Number: US-BIOGENIDEC-2010BI004626

PATIENT
  Age: 60 Year
  Sex: Female

DRUGS (2)
  1. AVONEX [Suspect]
     Active Substance: INTERFERON BETA-1A
     Indication: MULTIPLE SCLEROSIS
     Route: 030
     Dates: start: 20120210
  2. AVONEX [Suspect]
     Active Substance: INTERFERON BETA-1A
     Indication: MULTIPLE SCLEROSIS
     Route: 030
     Dates: start: 20010215, end: 20110401

REACTIONS (7)
  - Stress [Not Recovered/Not Resolved]
  - Skin cancer [Recovered/Resolved]
  - Myocardial infarction [Recovered/Resolved]
  - Squamous cell carcinoma of skin [Recovered/Resolved]
  - Precancerous skin lesion [Unknown]
  - Hypotension [Not Recovered/Not Resolved]
  - Stress cardiomyopathy [Unknown]

NARRATIVE: CASE EVENT DATE: 20090516
